FAERS Safety Report 5229453-6 (Version None)
Quarter: 2007Q1

REPORT INFORMATION
  Report Type: 
  Country: None (occurrence: None)
  Receive Date: 20070131
  Receipt Date: 20070115
  Transmission Date: 20070707
  Serious: Yes (Death, Hospitalization)
  Sender: FDA-Public Use
  Company Number: US-CVT-062366

PATIENT
  Age: 41 Year
  Sex: Male

DRUGS (6)
  1. RANEXA [Suspect]
     Indication: ANGINA PECTORIS
     Dosage: 500 MG, BID, ORAL
     Route: 048
     Dates: start: 20060101, end: 20061004
  2. TYLENOL W/ CODEINE NO. 3 [Suspect]
     Dosage: UNK, UNK, UNK
     Dates: end: 20061004
  3. CLONAZEPAM [Suspect]
     Dosage: 1 MG, UNK, ORAL
     Route: 048
     Dates: start: 20061004, end: 20061004
  4. PLAVIX [Concomitant]
  5. BACLOFEN [Concomitant]
  6. CLONAZEPAM [Concomitant]

REACTIONS (13)
  - BRADYCARDIA [None]
  - BRAIN DEATH [None]
  - CARDIAC ARREST [None]
  - COMA [None]
  - COMPLETED SUICIDE [None]
  - ENCEPHALOPATHY [None]
  - GASTROOESOPHAGEAL REFLUX DISEASE [None]
  - HYPOTENSION [None]
  - MULTIPLE DRUG OVERDOSE [None]
  - RENAL FAILURE ACUTE [None]
  - RESPIRATORY FAILURE [None]
  - SHOCK [None]
  - SUICIDAL IDEATION [None]
